FAERS Safety Report 6859355-0 (Version None)
Quarter: 2010Q3

REPORT INFORMATION
  Report Type: 
  Country: None (occurrence: None)
  Receive Date: 20100719
  Receipt Date: 20080514
  Transmission Date: 20110219
  Serious: Yes (Hospitalization, Other)
  Sender: FDA-Public Use
  Company Number: US-PFIZER INC-2008018319

PATIENT
  Age: 38 Year
  Sex: Female
  Weight: 89.4 kg

DRUGS (3)
  1. CHANTIX [Suspect]
     Indication: SMOKING CESSATION THERAPY
     Dosage: QD: EVERYDAY
     Route: 048
  2. LEXAPRO [Concomitant]
  3. CRESTOR [Concomitant]

REACTIONS (7)
  - ASTHENIA [None]
  - CLUMSINESS [None]
  - DISTURBANCE IN ATTENTION [None]
  - DIZZINESS [None]
  - HYPOTENSION [None]
  - PAIN [None]
  - SYNCOPE [None]
